FAERS Safety Report 24608025 (Version 1)
Quarter: 2024Q4

REPORT INFORMATION
  Report Type: Spontaneous
  Country: US (occurrence: US)
  Receive Date: 20241112
  Receipt Date: 20241112
  Transmission Date: 20250115
  Serious: Yes (Other)
  Sender: BAYER HEALTHCARE LLC
  Company Number: US-BAYER-2024A159320

PATIENT
  Age: 68 Year
  Sex: Female

DRUGS (1)
  1. ASPIRIN [Suspect]
     Active Substance: ASPIRIN
     Dosage: 325 MG, QD
     Dates: start: 2016

REACTIONS (2)
  - NSAID exacerbated respiratory disease [None]
  - Product prescribing issue [None]
